FAERS Safety Report 9667960 (Version 1)
Quarter: 2013Q4

REPORT INFORMATION
  Report Type: Spontaneous
  Country: US (occurrence: US)
  Receive Date: 20131104
  Receipt Date: 20131104
  Transmission Date: 20140711
  Serious: Yes (Hospitalization)
  Sender: FDA-Public Use
  Company Number: US-GLAXOSMITHKLINE-A1047305A

PATIENT
  Sex: Female

DRUGS (9)
  1. ADVAIR [Suspect]
     Indication: ASTHMA
     Dosage: 1PUFF PER DAY
     Route: 055
  2. COMBIVENT [Concomitant]
  3. THEOPHYLLINE [Concomitant]
  4. OMEPRAZOLE [Concomitant]
  5. CITALOPRAM [Concomitant]
  6. DILTIAZEM [Concomitant]
  7. SIMVASTATIN [Concomitant]
  8. ALLEGRA-D [Concomitant]
  9. TUMS [Concomitant]

REACTIONS (9)
  - Apparent death [Unknown]
  - Loss of consciousness [Not Recovered/Not Resolved]
  - Dyspnoea [Not Recovered/Not Resolved]
  - Drug administration error [Not Recovered/Not Resolved]
  - Oropharyngeal pain [Not Recovered/Not Resolved]
  - Cough [Not Recovered/Not Resolved]
  - Ill-defined disorder [Not Recovered/Not Resolved]
  - Bronchitis [Not Recovered/Not Resolved]
  - Inhalation therapy [Not Recovered/Not Resolved]
